FAERS Safety Report 11297865 (Version 1)
Quarter: 2015Q3

REPORT INFORMATION
  Report Type: Spontaneous
  Country: US (occurrence: US)
  Receive Date: 20150722
  Receipt Date: 20150722
  Transmission Date: 20151125
  Serious: No
  Sender: FDA-Public Use
  Company Number: US-ELI_LILLY_AND_COMPANY-US201007001422

PATIENT
  Sex: Male

DRUGS (1)
  1. HUMATROPE [Suspect]
     Active Substance: SOMATROPIN
     Dosage: 0.1 MG, DAILY (1/D)

REACTIONS (4)
  - Visual acuity reduced [Unknown]
  - Cataract [Unknown]
  - Blood growth hormone abnormal [Unknown]
  - Blood growth hormone decreased [Unknown]
